FAERS Safety Report 14290673 (Version 2)
Quarter: 2018Q1

REPORT INFORMATION
  Report Type: Spontaneous
  Country: US (occurrence: US)
  Receive Date: 20171215
  Receipt Date: 20180104
  Transmission Date: 20180509
  Serious: Yes (Other)
  Sender: FDA-Public Use
  Company Number: US-JNJFOC-20171207357

PATIENT
  Age: 73 Year
  Sex: Female

DRUGS (21)
  1. VALIUM [Concomitant]
     Active Substance: DIAZEPAM
     Dosage: 1 TABLET IN AM AND 1 IN PM
     Route: 065
  2. METFORMIN [Concomitant]
     Active Substance: METFORMIN HYDROCHLORIDE
     Dosage: 2 TABLETS IN AM AND 2 IN PM
     Route: 065
  3. VITAMINA B12 [Concomitant]
     Route: 065
  4. MIDRIN [Concomitant]
     Active Substance: ACETAMINOPHEN\DICHLORALPHENAZONE\ISOMETHEPTENE
     Indication: MIGRAINE
     Route: 065
  5. VITAMIN D [Concomitant]
     Active Substance: CHOLECALCIFEROL
     Route: 065
  6. ZYRTEC [Concomitant]
     Active Substance: CETIRIZINE HYDROCHLORIDE
     Route: 065
  7. XARELTO [Suspect]
     Active Substance: RIVAROXABAN
     Indication: PRODUCT USED FOR UNKNOWN INDICATION
     Route: 048
  8. SYNTHROID [Concomitant]
     Active Substance: LEVOTHYROXINE SODIUM
     Route: 065
  9. GLYCERYL TRINITRATE [Concomitant]
     Active Substance: NITROGLYCERIN
     Route: 065
  10. GLIMEPIRIDE. [Concomitant]
     Active Substance: GLIMEPIRIDE
     Dosage: 1 TABLET IN AM AND 1 IN PM
     Route: 065
  11. METOPROLOL SUCCINATE. [Concomitant]
     Active Substance: METOPROLOL SUCCINATE
     Dosage: HALF (1/2) TABLET IN AM AND HALF (1/2) IN PM
     Route: 065
  12. OCUVITE [Concomitant]
     Active Substance: VITAMINS
     Route: 065
  13. FOSAMAX [Concomitant]
     Active Substance: ALENDRONATE SODIUM
     Route: 065
  14. LOZOL [Concomitant]
     Active Substance: INDAPAMIDE
     Dosage: 2 TABLETS IN AM AND 1 IN PM
     Route: 065
  15. LIBRAX [Concomitant]
     Active Substance: CHLORDIAZEPOXIDE HYDROCHLORIDE\CLIDINIUM BROMIDE
     Indication: GASTROINTESTINAL PAIN
     Dosage: 1 TABLET IN PM
     Route: 065
  16. PROTONIX [Concomitant]
     Active Substance: PANTOPRAZOLE SODIUM
     Route: 065
  17. MAGNESIUM [Concomitant]
     Active Substance: MAGNESIUM
     Route: 065
  18. DTP [Concomitant]
     Route: 065
     Dates: start: 20140501
  19. FLU [Concomitant]
     Active Substance: INFLUENZA VIRUS VACCINE
     Route: 065
     Dates: start: 201710
  20. ESTRADIOL. [Concomitant]
     Active Substance: ESTRADIOL
     Dosage: .05 PATCH ONCE WEEKLY
     Route: 065
  21. WELCHOL [Concomitant]
     Active Substance: COLESEVELAM HYDROCHLORIDE
     Route: 065

REACTIONS (6)
  - Increased tendency to bruise [Unknown]
  - Catheterisation cardiac [Unknown]
  - Bladder operation [Unknown]
  - Haemorrhage [Unknown]
  - Sleep apnoea syndrome [Unknown]
  - Cardiac operation [Unknown]

NARRATIVE: CASE EVENT DATE: 20140829
